FAERS Safety Report 8505029-X (Version None)
Quarter: 2012Q3

REPORT INFORMATION
  Report Type: 
  Country: None (occurrence: None)
  Receive Date: 20120712
  Receipt Date: 20120706
  Transmission Date: 20120928
  Serious: Yes (Hospitalization, Other)
  Sender: FDA-Public Use
  Company Number: NL-GENZYME-CAMP-1002238

PATIENT
  Age: 54 Year
  Sex: Male

DRUGS (9)
  1. DOXORUBICIN HCL [Suspect]
     Indication: T-CELL LYMPHOMA
     Dosage: 106 MG, QD
     Route: 042
     Dates: start: 20120229, end: 20120404
  2. PREDNISONE TAB [Suspect]
     Indication: T-CELL LYMPHOMA
     Dosage: 100 MG, QD
     Route: 048
     Dates: start: 20120229, end: 20120404
  3. VINCRISTINE SULFATE [Suspect]
     Indication: T-CELL LYMPHOMA
     Dosage: 2 MG, QD
     Route: 042
     Dates: start: 20120222, end: 20120404
  4. TRIMETHOPRIM [Concomitant]
     Indication: PROPHYLAXIS
     Dosage: 960 MG, QD
     Route: 048
     Dates: start: 20120416
  5. MABCAMPATH [Suspect]
     Indication: T-CELL LYMPHOMA
     Dosage: 30 MG, QD
     Route: 058
     Dates: start: 20120229, end: 20120404
  6. VALACICLOVIR [Concomitant]
     Indication: ANTIVIRAL PROPHYLAXIS
     Dosage: 500 MG, BID
     Route: 048
     Dates: start: 20120416
  7. FLUCONAZOLE [Concomitant]
     Indication: PROPHYLAXIS
     Dosage: 400 MG, QD
     Route: 048
     Dates: start: 20120416
  8. CYCLOPHOSPHAMIDE [Suspect]
     Indication: T-CELL LYMPHOMA
     Dosage: 1600 MG/M2, QD
     Route: 042
     Dates: start: 20120229, end: 20120404
  9. ESOMEPRAZOLE [Concomitant]
     Indication: PRODUCT USED FOR UNKNOWN INDICATION
     Dosage: 40 MG, QD
     Route: 048
     Dates: start: 20120416

REACTIONS (2)
  - ILEUS [None]
  - MESENTERIC ARTERY THROMBOSIS [None]
